FAERS Safety Report 13261080 (Version 2)
Quarter: 2017Q1

REPORT INFORMATION
  Report Type: Spontaneous
  Country: CN (occurrence: CN)
  Receive Date: 20170222
  Receipt Date: 20170227
  Transmission Date: 20170428
  Serious: No
  Sender: FDA-Public Use
  Company Number: CN-OTSUKA-2017_004317

PATIENT

DRUGS (3)
  1. ATG RABBIT (ANTITHYMOCYTE IMMUNOGLOBULIN (RABBIT)) [Suspect]
     Active Substance: LAPINE T-LYMPHOCYTE IMMUNE GLOBULIN
     Indication: STEM CELL TRANSPLANT
     Dosage: 2.5 MG/KG, QD (FOR FOUR CONSECNTIVE DAYS FROM DAYS 5 TO 2)
     Route: 042
  2. BUSULFEX [Suspect]
     Active Substance: BUSULFAN
     Indication: STEM CELL TRANSPLANT
     Dosage: 0.8 MG/KG, QID (FOUR TIMES DAILY ON DAYS -7 AND -6)
     Route: 042
  3. CYCLOPHOSPHAMIDE. [Suspect]
     Active Substance: CYCLOPHOSPHAMIDE
     Indication: STEM CELL TRANSPLANT
     Dosage: 50 MG/KG, QD (ONCE DAILY ON DAYS ON DAYS - 5, - 4, - 3 AND- 2)
     Route: 042

REACTIONS (1)
  - No adverse event [Unknown]
